FAERS Safety Report 5455395-7 (Version None)
Quarter: 2007Q3

REPORT INFORMATION
  Report Type: 
  Country: None (occurrence: None)
  Receive Date: 20070918
  Receipt Date: 20070330
  Transmission Date: 20080115
  Serious: Yes (Other)
  Sender: FDA-Public Use
  Company Number: US-ASTRAZENECA-2006UW21033

PATIENT
  Sex: Male
  Weight: 79.1 kg

DRUGS (5)
  1. SEROQUEL [Suspect]
     Indication: DEPRESSION
     Route: 048
     Dates: start: 20020101
  2. HALDOL [Concomitant]
  3. THORAZINE [Concomitant]
  4. RISPERDAL [Concomitant]
  5. OLANZAPINE [Concomitant]

REACTIONS (5)
  - DIABETES MELLITUS [None]
  - DIABETIC COMA [None]
  - GLYCOSURIA [None]
  - HYPERGLYCAEMIA [None]
  - PANCREATITIS [None]
